FAERS Safety Report 6177729-0 (Version None)
Quarter: 2009Q2

REPORT INFORMATION
  Report Type: 
  Country: None (occurrence: None)
  Receive Date: 20090504
  Receipt Date: 20081219
  Transmission Date: 20091009
  Serious: No
  Sender: FDA-Public Use
  Company Number: US-ALEXION-A200800431

PATIENT
  Sex: Male

DRUGS (5)
  1. SOLIRIS [Suspect]
     Indication: PAROXYSMAL NOCTURNAL HAEMOGLOBINURIA
     Dosage: 600 MG, UNK
     Route: 042
     Dates: start: 20081010
  2. SOLIRIS [Suspect]
     Dosage: 900 MG, Q2W
     Route: 042
     Dates: start: 20081107
  3. FOLIC ACID [Concomitant]
     Dosage: UNK
  4. MULTIVITAMIN                       /00831701/ [Concomitant]
     Dosage: UNK
  5. IRON [Concomitant]
     Dosage: UNK

REACTIONS (7)
  - CHROMATURIA [None]
  - DIARRHOEA [None]
  - GASTROINTESTINAL INFECTION [None]
  - HAEMOGLOBIN DECREASED [None]
  - HAEMOLYSIS [None]
  - NASOPHARYNGITIS [None]
  - VOMITING [None]
